FAERS Safety Report 6373206-2 (Version None)
Quarter: 2009Q3

REPORT INFORMATION
  Report Type: 
  Country: None (occurrence: None)
  Receive Date: 20090924
  Receipt Date: 20090327
  Transmission Date: 20100115
  Serious: Yes (Other)
  Sender: FDA-Public Use
  Company Number: US-ASTRAZENECA-2009UW02750

PATIENT
  Sex: Male

DRUGS (3)
  1. SEROQUEL [Suspect]
     Indication: BIPOLAR DISORDER
     Dosage: 25MG
     Route: 048
  2. SEROQUEL [Suspect]
     Indication: DEPRESSION
     Dosage: 25MG
     Route: 048
  3. SEROQUEL [Suspect]
     Indication: AGITATION
     Dosage: 25MG
     Route: 048

REACTIONS (12)
  - ABNORMAL DREAMS [None]
  - BACK PAIN [None]
  - DRUG INEFFECTIVE [None]
  - MUSCLE RIGIDITY [None]
  - MUSCLE RUPTURE [None]
  - MUSCLE SPASMS [None]
  - MUSCLE TIGHTNESS [None]
  - MYALGIA [None]
  - SCRATCH [None]
  - TARDIVE DYSKINESIA [None]
  - TREMOR [None]
  - WEIGHT INCREASED [None]
